FAERS Safety Report 24330713 (Version 1)
Quarter: 2024Q3

REPORT INFORMATION
  Report Type: Report from Study
  Country: US (occurrence: US)
  Receive Date: 20240918
  Receipt Date: 20240918
  Transmission Date: 20241017
  Serious: No
  Sender: ACADIA PHARMACEUTICALS
  Company Number: US-ACADIA PHARMACEUTICALS INC.-ACA-2024-PIM-005015

PATIENT
  Age: 77 Year
  Sex: Male

DRUGS (9)
  1. NUPLAZID [Suspect]
     Active Substance: PIMAVANSERIN TARTRATE
     Indication: Parkinson^s disease
     Dosage: 34 MILLIGRAM, QD
     Route: 048
     Dates: start: 20240503
  2. AMANTADINE [Concomitant]
     Active Substance: AMANTADINE
  3. ENTACAPONE [Concomitant]
     Active Substance: ENTACAPONE
  4. LANTUS [Concomitant]
     Active Substance: INSULIN GLARGINE
  5. OFLOXACIN [Concomitant]
     Active Substance: OFLOXACIN
     Dosage: OPTHALMIC SOLUTION
  6. SENNA LEAF [Concomitant]
     Active Substance: SENNA LEAF
  7. SERTRALINE [Concomitant]
     Active Substance: SERTRALINE HYDROCHLORIDE
  8. DOCUSATE [Concomitant]
     Active Substance: DOCUSATE
  9. MIRALAX [Concomitant]
     Active Substance: POLYETHYLENE GLYCOL 3350

REACTIONS (1)
  - Constipation [Not Recovered/Not Resolved]

NARRATIVE: CASE EVENT DATE: 20240724
